FAERS Safety Report 5321327-5 (Version None)
Quarter: 2007Q2

REPORT INFORMATION
  Report Type: 
  Country: None (occurrence: None)
  Receive Date: 20070504
  Receipt Date: 20070425
  Transmission Date: 20071010
  Serious: Yes (Other)
  Sender: FDA-Public Use
  Company Number: JPI-P-000990

PATIENT
  Age: 54 Year
  Sex: Female
  Weight: 46.7205 kg

DRUGS (14)
  1. XYREM [Suspect]
     Indication: SLEEP DISORDER
     Dosage: SEE IMAGE
     Route: 048
     Dates: start: 20070215, end: 20070314
  2. XYREM [Suspect]
     Indication: SOMNOLENCE
     Dosage: SEE IMAGE
     Route: 048
     Dates: start: 20070215, end: 20070314
  3. XYREM [Suspect]
     Indication: SLEEP DISORDER
     Dosage: SEE IMAGE
     Route: 048
     Dates: start: 20070315, end: 20070401
  4. XYREM [Suspect]
     Indication: SOMNOLENCE
     Dosage: SEE IMAGE
     Route: 048
     Dates: start: 20070315, end: 20070401
  5. XYREM [Suspect]
     Indication: SLEEP DISORDER
     Dosage: SEE IMAGE
     Route: 048
     Dates: start: 20070401, end: 20070401
  6. XYREM [Suspect]
     Indication: SOMNOLENCE
     Dosage: SEE IMAGE
     Route: 048
     Dates: start: 20070401, end: 20070401
  7. XYREM [Suspect]
     Indication: SLEEP DISORDER
     Dosage: SEE IMAGE
     Route: 048
     Dates: start: 20070402
  8. XYREM [Suspect]
     Indication: SOMNOLENCE
     Dosage: SEE IMAGE
     Route: 048
     Dates: start: 20070402
  9. XYREM [Suspect]
     Indication: SLEEP DISORDER
     Dosage: SEE IMAGE
     Route: 048
     Dates: start: 20070402
  10. XYREM [Suspect]
     Indication: SOMNOLENCE
     Dosage: SEE IMAGE
     Route: 048
     Dates: start: 20070402
  11. GEODON [Concomitant]
  12. SYNTHROID [Concomitant]
  13. WELLBUTRIN [Concomitant]
  14. ADDERALL (OBETROL /01345401/) [Concomitant]

REACTIONS (7)
  - ABNORMAL BEHAVIOUR [None]
  - AGGRESSION [None]
  - CONVULSION [None]
  - FALL [None]
  - GRUNTING [None]
  - HYPERHIDROSIS [None]
  - SYNCOPE [None]
